FAERS Safety Report 16182506 (Version 3)
Quarter: 2019Q2

REPORT INFORMATION
  Report Type: Spontaneous
  Country: PL (occurrence: PL)
  Receive Date: 20190410
  Receipt Date: 20190528
  Transmission Date: 20190711
  Serious: Yes (Hospitalization, Other)
  Sender: FDA-Public Use
  Company Number: PHHY2019PL079404

PATIENT
  Age: 31 Year
  Sex: Female

DRUGS (1)
  1. INTERFERON BETA-1B [Suspect]
     Active Substance: INTERFERON BETA-1B
     Indication: MULTIPLE SCLEROSIS
     Dosage: 250 MG/ML, UNK
     Route: 058

REACTIONS (9)
  - Injection site extravasation [Recovered/Resolved]
  - Paraparesis [Unknown]
  - Injection site erythema [Unknown]
  - Connective tissue inflammation [Recovered/Resolved]
  - Injection site oedema [Recovered/Resolved]
  - Autoimmune dermatitis [Recovered/Resolved]
  - Multiple sclerosis relapse [Unknown]
  - Injection site erythema [Recovered/Resolved]
  - Injection site induration [Recovered/Resolved]

NARRATIVE: CASE EVENT DATE: 201902
